FAERS Safety Report 9485606 (Version 1)
Quarter: 2013Q3

REPORT INFORMATION
  Report Type: Other
  Country: TR (occurrence: TR)
  Receive Date: 20130829
  Receipt Date: 20130829
  Transmission Date: 20140515
  Serious: Yes (Hospitalization)
  Sender: FDA-Public Use
  Company Number: TR-US-EMD SERONO, INC.-7233130

PATIENT
  Age: 37 Year
  Sex: Female

DRUGS (3)
  1. CETRORELIX ACETATE [Suspect]
     Indication: IN VITRO FERTILISATION
  2. CHORIOGONADOTROPIN ALFA [Suspect]
     Indication: IN VITRO FERTILISATION
  3. CHORIOGONADOTROPIN ALFA [Suspect]

REACTIONS (3)
  - Ruptured ectopic pregnancy [Recovered/Resolved]
  - Cerebral venous thrombosis [Recovered/Resolved]
  - Generalised oedema [Unknown]
